FAERS Safety Report 23405635 (Version 2)
Quarter: 2024Q1

REPORT INFORMATION
  Report Type: Spontaneous
  Country: US (occurrence: US)
  Receive Date: 20240116
  Receipt Date: 20240301
  Transmission Date: 20240409
  Serious: Yes (Hospitalization, Other)
  Sender: FDA-Public Use
  Company Number: US-PFIZER INC-202400010174

PATIENT
  Age: 88 Year
  Sex: Male
  Weight: 128 kg

DRUGS (6)
  1. VYNDAMAX [Suspect]
     Active Substance: TAFAMIDIS
     Indication: Cardiac disorder
     Dosage: 10 MG TWO TIMES A DAY
     Dates: start: 202308
  2. SPIRONOLACTONE [Concomitant]
     Active Substance: SPIRONOLACTONE
     Dosage: HALF OF THIS ONE, EVERYDAY ONE HALF WITH FOOD
     Route: 048
  3. PREDNISONE [Concomitant]
     Active Substance: PREDNISONE
     Dosage: 10 MG
  4. FAMOTIDINE [Concomitant]
     Active Substance: FAMOTIDINE
     Dosage: 20 MG
  5. LORAZEPAM [Concomitant]
     Active Substance: LORAZEPAM
     Dosage: LORAZEPAM, 0.5
  6. AMIODARONE [Concomitant]
     Active Substance: AMIODARONE
     Dosage: 200 MG

REACTIONS (4)
  - Neoplasm malignant [Not Recovered/Not Resolved]
  - Weight decreased [Not Recovered/Not Resolved]
  - Fibroma [Unknown]
  - Off label use [Unknown]

NARRATIVE: CASE EVENT DATE: 20230801
